FAERS Safety Report 7358269-X (Version None)
Quarter: 2011Q1

REPORT INFORMATION
  Report Type: 
  Country: None (occurrence: None)
  Receive Date: 20110317
  Receipt Date: 20101217
  Transmission Date: 20110831
  Serious: Yes (Other)
  Sender: FDA-Public Use
  Company Number: PHHY2010JP84589

PATIENT
  Age: 54 Year
  Sex: Male

DRUGS (10)
  1. GRAMALIL [Concomitant]
     Dosage: 75 MG, QD
  2. TANDOSPIRONE [Suspect]
     Dosage: 30 MG, QD
  3. SEROQUEL [Concomitant]
     Dosage: 300 MG, QD
  4. RISPERDAL [Concomitant]
     Dosage: 6 MG, QD
  5. SEROQUEL [Concomitant]
     Dosage: 100 MG
  6. YOKUKAN-SAN [Concomitant]
     Dosage: 5 G, QD
  7. TEGRETOL [Suspect]
     Indication: PSYCHIATRIC SYMPTOM
     Dosage: 300 MG, QD
     Route: 048
     Dates: start: 20090901
  8. TANDOSPIRONE [Suspect]
     Dosage: 60 MG, QD, DOSE INCREASED SINCE 3 WEEKS LATER
  9. DEPAKENE [Concomitant]
     Dosage: 1200 MG, QD
  10. SERENACE [Concomitant]
     Dosage: 25 MG, QD
     Route: 030

REACTIONS (11)
  - COGNITIVE DISORDER [None]
  - NERVOUS SYSTEM DISORDER [None]
  - ABNORMAL BEHAVIOUR [None]
  - DRUG INEFFECTIVE [None]
  - SEDATION [None]
  - ANXIETY [None]
  - ENCEPHALITIS [None]
  - AGITATION [None]
  - PORIOMANIA [None]
  - EUPHORIC MOOD [None]
  - HYPONATRAEMIA [None]
